FAERS Safety Report 20304383 (Version 1)
Quarter: 2022Q1

REPORT INFORMATION
  Report Type: Spontaneous
  Country: US (occurrence: US)
  Receive Date: 20220106
  Receipt Date: 20220106
  Transmission Date: 20220423
  Serious: Yes (Hospitalization)
  Sender: FDA-Public Use
  Company Number: US-MYLANLABS-2022M1001126

PATIENT
  Age: 68 Year
  Sex: Female

DRUGS (3)
  1. DOXYCYCLINE [Suspect]
     Active Substance: DOXYCYCLINE
     Indication: Skin injury
     Dosage: RECONSTITUTED IN 5ML OF STERILE NORMAL SALINE
     Route: 026
  2. DOXYCYCLINE [Suspect]
     Active Substance: DOXYCYCLINE
     Indication: Soft tissue injury
  3. SODIUM CHLORIDE [Concomitant]
     Active Substance: SODIUM CHLORIDE
     Indication: Vehicle solution use
     Dosage: 100MG OF DOXYCYCLINE WAS RECONSTITUTED IN 5ML OF STERILE NORMAL SALINE
     Route: 026

REACTIONS (2)
  - Treatment failure [Unknown]
  - Off label use [Unknown]
